FAERS Safety Report 19144333 (Version 1)
Quarter: 2021Q2

REPORT INFORMATION
  Report Type: Spontaneous
  Country: US (occurrence: US)
  Receive Date: 20210416
  Receipt Date: 20210416
  Transmission Date: 20210717
  Serious: Yes (Other)
  Sender: FDA-Public Use
  Company Number: US-SA-2021SA114003

PATIENT
  Age: 78 Year
  Sex: Female

DRUGS (1)
  1. CLOPIDOGREL BISULFATE. [Suspect]
     Active Substance: CLOPIDOGREL BISULFATE
     Indication: ANTIPLATELET THERAPY
     Dosage: SIX 75 MG TABLETS
     Route: 048

REACTIONS (6)
  - Dysphagia [Recovered/Resolved]
  - Oesophagitis [Recovered/Resolved]
  - Oesophageal ulcer [Recovered/Resolved]
  - Chest pain [Recovered/Resolved]
  - Oropharyngeal discomfort [Recovered/Resolved]
  - Chest discomfort [Recovered/Resolved]
